FAERS Safety Report 10622070 (Version 1)
Quarter: 2014Q4

REPORT INFORMATION
  Report Type: Spontaneous
  Country: US (occurrence: US)
  Receive Date: 20141203
  Receipt Date: 20141203
  Transmission Date: 20150529
  Serious: Yes (Hospitalization, Other)
  Sender: FDA-Public Use
  Company Number: US-GLAXOSMITHKLINE-US2014GSK029679

PATIENT
  Age: 70 Year
  Sex: Female

DRUGS (2)
  1. LAMOTRIGINE. [Suspect]
     Active Substance: LAMOTRIGINE
     Indication: SCHIZOPHRENIA
  2. ACCUPRIL [Suspect]
     Active Substance: QUINAPRIL HYDROCHLORIDE

REACTIONS (12)
  - Rash generalised [Unknown]
  - Rash macular [Unknown]
  - Blood bilirubin increased [Unknown]
  - International normalised ratio increased [Unknown]
  - Pneumonia [Unknown]
  - Swelling face [Unknown]
  - Oropharyngeal pain [Unknown]
  - Skin exfoliation [Unknown]
  - Drug reaction with eosinophilia and systemic symptoms [Recovered/Resolved]
  - Angioedema [Unknown]
  - Chapped lips [Unknown]
  - Lymphadenopathy [Unknown]
